FAERS Safety Report 16880733 (Version 1)
Quarter: 2019Q4

REPORT INFORMATION
  Report Type: Spontaneous
  Country: US (occurrence: US)
  Receive Date: 20191002
  Receipt Date: 20191002
  Transmission Date: 20200122
  Serious: Yes (Other)
  Sender: FDA-Public Use
  Company Number: None

PATIENT
  Age: 40 Year
  Sex: Female
  Weight: 65.25 kg

DRUGS (16)
  1. MIRAPEX [Concomitant]
     Active Substance: PRAMIPEXOLE DIHYDROCHLORIDE
  2. TRAZODONE [Concomitant]
     Active Substance: TRAZODONE HYDROCHLORIDE
  3. BENTYL [Concomitant]
     Active Substance: DICYCLOMINE HYDROCHLORIDE
  4. ZINC. [Concomitant]
     Active Substance: ZINC
  5. VYVANSE [Concomitant]
     Active Substance: LISDEXAMFETAMINE DIMESYLATE
  6. PROZAC [Concomitant]
     Active Substance: FLUOXETINE HYDROCHLORIDE
  7. PROBIOTICS [Concomitant]
     Active Substance: PROBIOTICS NOS
  8. AMBIEN CR [Concomitant]
     Active Substance: ZOLPIDEM TARTRATE
  9. LYRICA [Suspect]
     Active Substance: PREGABALIN
     Indication: FIBROMYALGIA
     Dosage: ?          QUANTITY:60 CAPSULE(S);?
     Route: 048
     Dates: start: 20190916, end: 20190923
  10. WELLBUTRIN XL [Concomitant]
     Active Substance: BUPROPION HYDROCHLORIDE
  11. BUSPAR [Concomitant]
     Active Substance: BUSPIRONE HYDROCHLORIDE
  12. PRILOSEC [Concomitant]
     Active Substance: OMEPRAZOLE MAGNESIUM
  13. ADDERALL [Concomitant]
     Active Substance: AMPHETAMINE ASPARTATE\AMPHETAMINE SULFATE\DEXTROAMPHETAMINE SACCHARATE\DEXTROAMPHETAMINE SULFATE
  14. DECADRON [Concomitant]
     Active Substance: DEXAMETHASONE
  15. ADVIL [Concomitant]
     Active Substance: IBUPROFEN
  16. MAGNESIUM [Concomitant]
     Active Substance: MAGNESIUM

REACTIONS (20)
  - Dizziness [None]
  - Fatigue [None]
  - Tremor [None]
  - Pruritus [None]
  - Feeling hot [None]
  - Disorientation [None]
  - Sensation of blood flow [None]
  - Impaired driving ability [None]
  - Confusional state [None]
  - Myalgia [None]
  - Hallucinations, mixed [None]
  - Migraine [None]
  - Therapy cessation [None]
  - Nausea [None]
  - Neuralgia [None]
  - Blood pressure increased [None]
  - Muscular weakness [None]
  - Memory impairment [None]
  - Nightmare [None]
  - Pain in extremity [None]

NARRATIVE: CASE EVENT DATE: 20190923
